FAERS Safety Report 10345191 (Version 1)
Quarter: 2014Q3

REPORT INFORMATION
  Report Type: Spontaneous
  Country: US (occurrence: US)
  Receive Date: 20140728
  Receipt Date: 20140728
  Transmission Date: 20150326
  Serious: No
  Sender: FDA-Public Use
  Company Number: US-TEVA-495797USA

PATIENT
  Age: 39 Year
  Sex: Female

DRUGS (1)
  1. COPAXONE [Suspect]
     Active Substance: GLATIRAMER ACETATE
     Indication: MULTIPLE SCLEROSIS
     Dates: start: 20140512

REACTIONS (3)
  - Oropharyngeal pain [Unknown]
  - Influenza [Unknown]
  - Pharyngeal inflammation [Unknown]

NARRATIVE: CASE EVENT DATE: 20140712
